FAERS Safety Report 15626389 (Version 1)
Quarter: 2018Q4

REPORT INFORMATION
  Report Type: Spontaneous
  Country: US (occurrence: US)
  Receive Date: 20181116
  Receipt Date: 20181116
  Transmission Date: 20190205
  Serious: Yes (Other)
  Sender: FDA-Public Use
  Company Number: US-ALLERGAN-1853352US

PATIENT
  Age: 50 Year
  Sex: Female

DRUGS (2)
  1. THYROID MEDICATION UNSPECIFIED [Concomitant]
     Indication: HYPOTHYROIDISM
     Dosage: UNK
     Route: 048
  2. LEXAPRO [Suspect]
     Active Substance: ESCITALOPRAM OXALATE
     Indication: DEPRESSION
     Dosage: UNK
     Route: 048
     Dates: start: 2015, end: 2018

REACTIONS (3)
  - Crying [Recovered/Resolved]
  - Adrenal insufficiency [Unknown]
  - Therapeutic response decreased [Unknown]
